FAERS Safety Report 7232496-4 (Version None)
Quarter: 2011Q1

REPORT INFORMATION
  Report Type: 
  Country: None (occurrence: None)
  Receive Date: 20110107
  Receipt Date: 20101229
  Transmission Date: 20110831
  Serious: Yes (Other)
  Sender: FDA-Public Use
  Company Number: CRC-10-215

PATIENT
  Sex: Female

DRUGS (4)
  1. ELOXATIN [Suspect]
     Indication: COLON CANCER METASTATIC
  2. AVASTIN [Suspect]
     Indication: COLON CANCER METASTATIC
  3. FLUOROURACIL [Suspect]
     Indication: COLON CANCER METASTATIC
  4. OXALIPLATIN [Suspect]
     Indication: COLON CANCER METASTATIC

REACTIONS (3)
  - REFUSAL OF TREATMENT BY PATIENT [None]
  - RENAL FAILURE [None]
  - DIALYSIS [None]
